FAERS Safety Report 13928879 (Version 1)
Quarter: 2017Q3

REPORT INFORMATION
  Report Type: Report from Study
  Country: None (occurrence: AR)
  Receive Date: 20170901
  Receipt Date: 20170901
  Transmission Date: 20171127
  Serious: Yes (Other)
  Sender: FDA-Public Use
  Company Number: AR-ABBVIE-17K-007-2088499-00

PATIENT
  Age: 12 Year
  Sex: Male
  Weight: 37.5 kg

DRUGS (2)
  1. HUMIRA [Suspect]
     Active Substance: ADALIMUMAB
     Route: 058
     Dates: start: 20170815
  2. HUMIRA [Suspect]
     Active Substance: ADALIMUMAB
     Indication: CROHN^S DISEASE
     Route: 058
     Dates: start: 20161117

REACTIONS (3)
  - Haematochezia [Recovered/Resolved]
  - Pyrexia [Recovered/Resolved]
  - Tonsillitis [Recovering/Resolving]

NARRATIVE: CASE EVENT DATE: 20170806
